FAERS Safety Report 7180039-6 (Version None)
Quarter: 2010Q4

REPORT INFORMATION
  Report Type: 
  Country: None (occurrence: None)
  Receive Date: 20101123
  Receipt Date: 20100802
  Transmission Date: 20110411
  Serious: No
  Sender: FDA-Public Use
  Company Number: 016789

PATIENT
  Sex: Female
  Weight: 84.8 kg

DRUGS (4)
  1. CIMZIA [Suspect]
     Indication: CROHN'S DISEASE
     Dosage: (SUBCUTANEOUS) ; (200 MG 1X/WEEK, INJECT TO THE BELLY SUBCUTANEOUS)
     Route: 058
     Dates: start: 20100126, end: 20100101
  2. CIMZIA [Suspect]
     Indication: CROHN'S DISEASE
     Dosage: (SUBCUTANEOUS) ; (200 MG 1X/WEEK, INJECT TO THE BELLY SUBCUTANEOUS)
     Route: 058
     Dates: start: 20100729
  3. MERCAPTOPURINE [Concomitant]
  4. IRON W/VITAMIN C [Concomitant]

REACTIONS (5)
  - CLOSTRIDIAL INFECTION [None]
  - FATIGUE [None]
  - HEADACHE [None]
  - INFLUENZA LIKE ILLNESS [None]
  - PAIN [None]
